APPROVED DRUG PRODUCT: DOXYCYCLINE
Active Ingredient: DOXYCYCLINE HYCLATE
Strength: EQ 100MG BASE/VIAL
Dosage Form/Route: INJECTABLE;INJECTION
Application: A091406 | Product #001 | TE Code: AP
Applicant: MYLAN LABORATORIES LTD
Approved: Aug 21, 2012 | RLD: No | RS: No | Type: RX